FAERS Safety Report 23898638 (Version 3)
Quarter: 2024Q2

REPORT INFORMATION
  Report Type: Spontaneous
  Country: US (occurrence: US)
  Receive Date: 20240525
  Receipt Date: 20240618
  Transmission Date: 20240715
  Serious: Yes (Hospitalization, Other)
  Sender: FDA-Public Use
  Company Number: US-ABBVIE-5769849

PATIENT
  Sex: Male
  Weight: 95.254 kg

DRUGS (27)
  1. CREON [Suspect]
     Active Substance: PANCRELIPASE AMYLASE\PANCRELIPASE LIPASE\PANCRELIPASE PROTEASE
     Indication: Pancreatic failure
     Dosage: 5 CAPSULES WITH MEALS X 6 DAYS, 3 WITH SNACKS X 3 DAYS?STRENGTH- 24000 IU?UNIT DOSE - 72 CAPSULES
     Route: 048
     Dates: start: 20240516, end: 202405
  2. CREON [Suspect]
     Active Substance: PANCRELIPASE AMYLASE\PANCRELIPASE LIPASE\PANCRELIPASE PROTEASE
     Indication: Pancreatic failure
     Dosage: FORM STRENGTH: 24000 UNIT?FREQUENCY TEXT: 5 CAP WITH MEALS, 3 CAP WITH SNACKS
     Route: 048
     Dates: start: 2009, end: 20240514
  3. CREON [Suspect]
     Active Substance: PANCRELIPASE AMYLASE\PANCRELIPASE LIPASE\PANCRELIPASE PROTEASE
     Indication: Pancreatic failure
     Dosage: TIME INTERVAL: 0.33333333 DAYS: 36,000-114,000-180,000 UNIT CAPSULE ?TAKE 3 CAPSULES BY MOUTH ?TA...
     Route: 048
  4. CREON [Suspect]
     Active Substance: PANCRELIPASE AMYLASE\PANCRELIPASE LIPASE\PANCRELIPASE PROTEASE
     Indication: Pancreatic failure
     Dosage: FORM STRENGTH: 36000 UNIT?FREQUENCY TEXT: 3 CAP WITH MEALS, 1 CAP WITH SNACKS?START DATE TEXT: EN...
     Route: 048
     Dates: start: 202405
  5. CREON [Suspect]
     Active Substance: PANCRELIPASE AMYLASE\PANCRELIPASE LIPASE\PANCRELIPASE PROTEASE
     Indication: Pancreatic failure
     Dosage: FORM STRENGTH: 24000 UNIT?FREQUENCY TEXT: 7 CAP WITH MEALS, 3 CAP WITH SNACK
     Route: 048
     Dates: start: 20240515, end: 20240515
  6. ADVAIR HFA [Concomitant]
     Active Substance: FLUTICASONE PROPIONATE\SALMETEROL XINAFOATE
     Indication: Prophylaxis against transplant rejection
     Dosage: INHALE 1 PUFF INTO THE LUNGS ?STRENGTH: 500-50 MCG/DOSE DSDV?DISKUS
  7. CALCIUM CARBONATE\CHOLECALCIFEROL [Concomitant]
     Active Substance: CALCIUM CARBONATE\CHOLECALCIFEROL
     Indication: Mineral supplementation
     Dosage: 600 MG-10 MCG (400 UNIT) PER TABLET?TAKE 1 TABLET BY MOUTH
  8. SULFAMETHOXAZOLE\TRIMETHOPRIM [Concomitant]
     Active Substance: SULFAMETHOXAZOLE\TRIMETHOPRIM
     Indication: Product used for unknown indication
     Dosage: 400-80 MG PER TABLET?TAKE 1 TABLET BY MOUTH
     Route: 048
  9. PROGRAF [Concomitant]
     Active Substance: TACROLIMUS
     Indication: Product used for unknown indication
     Dosage: STRENGTH: 1 MG?TAKE 3 CAPSULES BY MOUTH
     Route: 048
  10. BACTRIM [Concomitant]
     Active Substance: SULFAMETHOXAZOLE\TRIMETHOPRIM
     Indication: Infection prophylaxis
  11. ACETAMINOPHEN [Concomitant]
     Active Substance: ACETAMINOPHEN
     Indication: Product used for unknown indication
     Dosage: TIME INTERVAL: AS NECESSARY: STRENGTH: 500 MG ?TAKE 2 TABLETS BY MOUTH AS NEEDED
     Route: 048
  12. INSULIN NOS [Concomitant]
     Active Substance: INSULIN NOS
     Indication: Diabetes mellitus
  13. ALBUTEROL SULFATE [Concomitant]
     Active Substance: ALBUTEROL SULFATE
     Indication: Wheezing
     Dosage: STRENGTH: 90 MCG/ACTUATION INHALER?INHALE 2 PUFFS INTO THE LUNGS AS NEEDED
     Route: 055
  14. CARVEDILOL [Concomitant]
     Active Substance: CARVEDILOL
     Indication: Hypertension
     Dosage: TAKE 1 TABLET BY MOUTH WITH MEALS. STRENGTH: 12.5 MG
  15. PREDNISONE [Concomitant]
     Active Substance: PREDNISONE
     Indication: Prophylaxis against transplant rejection
  16. TACROLIMUS [Concomitant]
     Active Substance: TACROLIMUS
     Indication: Prophylaxis against transplant rejection
  17. CHOLECALCIFEROL [Concomitant]
     Active Substance: CHOLECALCIFEROL
     Indication: Product used for unknown indication
     Dosage: DOSAGE: 1000 U TAKE 1 CAPSULE BY MOUTH ?STRENGTH: 250 MCG (10,000 UNIT) CAP
  18. OMEPRAZOLE [Concomitant]
     Active Substance: DONEPEZIL HYDROCHLORIDE\OMEPRAZOLE\OMEPRAZOLE MAGNESIUM
     Indication: Gastrooesophageal reflux disease
     Dosage: STRENGTH: 20 MG TAKE 1 CAPSULE BY MOUTH
     Route: 048
  19. NOVOLOG [Concomitant]
     Active Substance: INSULIN ASPART
     Indication: Product used for unknown indication
     Dosage: U-100 ?STRENGTH: 100 UNIT/ML ?FILL 200 UNITS INTO POD 12 TIMES PER MONTH
  20. SINGULAIR [Concomitant]
     Active Substance: MONTELUKAST SODIUM
     Indication: Hypersensitivity
     Dosage: STRENGTH: 10 MG?TAKE 1 TABLET BY MOUTH AT BEDTIME.
     Route: 048
  21. AZITHROMYCIN [Concomitant]
     Active Substance: AZITHROMYCIN
     Indication: Infection prophylaxis
     Dosage: FORM STRENGTH: 250 MG TAKE 1 TABLET BY MOUTH
  22. POLYETHYLENE GLYCOL [Concomitant]
     Active Substance: POLYETHYLENE GLYCOL
     Indication: Constipation
     Dosage: STRENGTH: 17 GRAM ?BY MOUTH AS NEEDED
     Route: 048
  23. DELTASONE [Concomitant]
     Active Substance: PREDNISONE
     Indication: Product used for unknown indication
     Dosage: TAKE 1 TABLET BY MOUTH ?STRENGTH: 5 MG
     Route: 048
  24. VITAMIN E [Concomitant]
     Active Substance: .ALPHA.-TOCOPHEROL
     Indication: Vitamin supplementation
     Dosage: DOSAGE: 800 U 180 MG (400 UNIT) CAP?TAKE 2 CAPSULES BY MOUTH
     Route: 048
  25. VITAMIN D [Concomitant]
     Active Substance: VITAMIN D NOS
     Indication: Vitamin supplementation
  26. MAGNESIUM [Concomitant]
     Active Substance: MAGNESIUM
     Indication: Mineral supplementation
     Dosage: TAKE 1 TABLET BY MOUTH. ONE TAB IN THE MORNING AND TWO TABS IN THE AFTERNOON STRENGTH: 400 MG
  27. TOBI [Concomitant]
     Active Substance: TOBRAMYCIN
     Indication: Product used for unknown indication
     Dosage: INHALE 300 MG INTO THE LUNGS FOR 28 DAYS. FOR 28 DAYS ONLY, NOT ON AN ALTERNATE MONTH BASIS.?300 ...
     Route: 055

REACTIONS (10)
  - Nephrolithiasis [Recovered/Resolved]
  - Abdominal pain [Recovered/Resolved]
  - Diarrhoea [Recovered/Resolved]
  - Drug ineffective [Recovered/Resolved]
  - Frequent bowel movements [Recovered/Resolved]
  - Product physical issue [Not Recovered/Not Resolved]
  - Product size issue [Not Recovered/Not Resolved]
  - Pulmonary function test decreased [Recovered/Resolved]
  - Intentional product misuse [Recovered/Resolved]
  - Cystic fibrosis [Recovered/Resolved]

NARRATIVE: CASE EVENT DATE: 20160101
